FAERS Safety Report 9153629 (Version 1)
Quarter: 2013Q1

REPORT INFORMATION
  Report Type: Spontaneous
  Country: ES (occurrence: None)
  Receive Date: 20130307
  Receipt Date: 20130307
  Transmission Date: 20140127
  Serious: Yes (Death, Hospitalization)
  Sender: FDA-Public Use
  Company Number: IMP_06580_2013

PATIENT
  Age: 78 Year
  Sex: Female

DRUGS (1)
  1. METFORMIN (METFORMIN) [Suspect]
     Indication: TYPE 2 DIABETES MELLITUS
     Dosage: (1X/24 HOURS)

REACTIONS (12)
  - Discomfort [None]
  - Asthenia [None]
  - Muscular weakness [None]
  - Diarrhoea [None]
  - Haemodynamic instability [None]
  - Bradycardia [None]
  - Blood pressure decreased [None]
  - Hyperhidrosis [None]
  - Anuria [None]
  - Metabolic acidosis [None]
  - Respiratory failure [None]
  - Multi-organ failure [None]
